FAERS Safety Report 6773937-6 (Version None)
Quarter: 2010Q2

REPORT INFORMATION
  Report Type: 
  Country: None (occurrence: None)
  Receive Date: 20100615
  Receipt Date: 20100615
  Transmission Date: 20101027
  Serious: No
  Sender: FDA-Public Use
  Company Number: None

PATIENT
  Age: 58 Year
  Sex: Male
  Weight: 62.5964 kg

DRUGS (1)
  1. OXALIPLATIN [Suspect]
     Dosage: 177 MG Q 2WKS IV
     Route: 042
     Dates: start: 20100611

REACTIONS (7)
  - BLOOD PRESSURE IMMEASURABLE [None]
  - FEELING ABNORMAL [None]
  - HYPERHIDROSIS [None]
  - INFUSION RELATED REACTION [None]
  - OXYGEN SATURATION DECREASED [None]
  - PRURITUS [None]
  - PULSE ABNORMAL [None]
